FAERS Safety Report 6426627-3 (Version None)
Quarter: 2009Q4

REPORT INFORMATION
  Report Type: 
  Country: None (occurrence: None)
  Receive Date: 20091030
  Receipt Date: 20091015
  Transmission Date: 20100525
  Serious: Yes (Other)
  Sender: FDA-Public Use
  Company Number: TPH-00227

PATIENT
  Sex: Female

DRUGS (2)
  1. TRIQUILAR [Suspect]
     Indication: CONTRACEPTION
     Dosage: TRANSPLACENTAL
     Route: 064
     Dates: start: 20080801, end: 20080909
  2. HYOSCINE HBR HYT [Concomitant]

REACTIONS (4)
  - CEREBRAL HYGROMA [None]
  - DACRYOSTENOSIS CONGENITAL [None]
  - HEAD CIRCUMFERENCE ABNORMAL [None]
  - MATERNAL DRUGS AFFECTING FOETUS [None]
